FAERS Safety Report 15081406 (Version 1)
Quarter: 2018Q2

REPORT INFORMATION
  Report Type: Spontaneous
  Country: US (occurrence: US)
  Receive Date: 20180607
  Receipt Date: 20180607
  Transmission Date: 20180711
  Serious: Yes (Other)
  Sender: FDA-Public Use
  Company Number: None

PATIENT
  Age: 63 Year
  Sex: Female

DRUGS (1)
  1. FORTEO [Suspect]
     Active Substance: TERIPARATIDE
     Indication: OSTEOPOROSIS
     Dosage: 0.08ML(20MCG) DAILY SC
     Route: 058
     Dates: start: 20170821

REACTIONS (1)
  - Injection site irritation [None]

NARRATIVE: CASE EVENT DATE: 20180530
